FAERS Safety Report 6016695-5 (Version None)
Quarter: 2008Q4

REPORT INFORMATION
  Report Type: 
  Country: None (occurrence: None)
  Receive Date: 20081218
  Receipt Date: 20081210
  Transmission Date: 20090506
  Serious: Yes (Hospitalization, Disabling)
  Sender: FDA-Public Use
  Company Number: 100#08#2008-06227

PATIENT
  Age: 33 Year
  Sex: Male

DRUGS (4)
  1. RISPERIDONE [Suspect]
     Indication: SCHIZOPHRENIA, PARANOID TYPE
     Dosage: 6 MG 3MG 12 MG 3 MG 9 MG
     Dates: start: 20061001, end: 20061101
  2. RISPERIDONE [Suspect]
     Indication: SCHIZOPHRENIA, PARANOID TYPE
     Dosage: 6 MG 3MG 12 MG 3 MG 9 MG
     Dates: start: 20061001, end: 20061101
  3. RISPERIDONE [Suspect]
     Indication: SCHIZOPHRENIA, PARANOID TYPE
     Dosage: 6 MG 3MG 12 MG 3 MG 9 MG
  4. RISPERIDONE [Suspect]
     Indication: SCHIZOPHRENIA, PARANOID TYPE
     Dosage: 6 MG 3MG 12 MG 3 MG 9 MG
     Dates: start: 20020101

REACTIONS (4)
  - PSYCHOTIC DISORDER [None]
  - SEXUAL DYSFUNCTION [None]
  - THERAPY REGIMEN CHANGED [None]
  - TREATMENT NONCOMPLIANCE [None]
